FAERS Safety Report 8832738 (Version 2)
Quarter: 2012Q4

REPORT INFORMATION
  Report Type: 
  Country: US (occurrence: US)
  Receive Date: 20121010
  Receipt Date: 20121113
  Transmission Date: 20130627
  Serious: Yes (Other)
  Sender: FDA-Public Use
  Company Number: US-CELGENEUS-163-20785-12083207

PATIENT
  Sex: Male
  Weight: 58.11 kg

DRUGS (16)
  1. THALOMID [Suspect]
     Indication: MULTIPLE MYELOMA
     Dosage: 50 Milligram
     Route: 048
     Dates: start: 20100518, end: 201007
  2. THALOMID [Suspect]
     Dosage: 100 Milligram
     Route: 048
     Dates: start: 201007, end: 201207
  3. THALOMID [Suspect]
     Dosage: 150 Milligram
     Route: 048
     Dates: start: 20120726, end: 20120829
  4. THALOMID [Suspect]
     Dosage: 100 Milligram
     Route: 048
     Dates: start: 20120829
  5. LANOXIN [Concomitant]
     Indication: DRUG USE FOR UNKNOWN INDICATION
     Dosage: .125 Milligram
     Route: 065
  6. LATANOPROST [Concomitant]
     Indication: DRUG USE FOR UNKNOWN INDICATION
     Dosage: .005 Percent
     Route: 065
  7. CELEXA [Concomitant]
     Indication: DRUG USE FOR UNKNOWN INDICATION
     Dosage: 20 Milligram
     Route: 065
  8. PLAVIX [Concomitant]
     Indication: DRUG USE FOR UNKNOWN INDICATION
     Dosage: 75 Milligram
     Route: 065
  9. KCL [Concomitant]
     Indication: DRUG USE FOR UNKNOWN INDICATION
     Dosage: 20 Milliequivalents
     Route: 065
  10. CETRIZINE [Concomitant]
     Indication: DRUG USE FOR UNKNOWN INDICATION
     Dosage: 10 Milligram
     Route: 065
  11. LASIX [Concomitant]
     Indication: DRUG USE FOR UNKNOWN INDICATION
     Dosage: 20 Milligram
     Route: 065
  12. LUMIGAN [Concomitant]
     Indication: DRUG USE FOR UNKNOWN INDICATION
     Dosage: .03 Percent
     Route: 065
  13. UNITHROID [Concomitant]
     Indication: DRUG USE FOR UNKNOWN INDICATION
     Dosage: 137 Microgram
     Route: 065
  14. TYLENOL [Concomitant]
     Indication: DRUG USE FOR UNKNOWN INDICATION
     Route: 065
  15. FLUTICASONE [Concomitant]
     Indication: DRUG USE FOR UNKNOWN INDICATION
     Route: 045
  16. DORZOLAMIDE [Concomitant]
     Indication: DRUG USE FOR UNKNOWN INDICATION
     Route: 047

REACTIONS (9)
  - Mitral valve incompetence [Unknown]
  - Tricuspid valve incompetence [Unknown]
  - Restrictive pulmonary disease [Unknown]
  - Actinic keratosis [Unknown]
  - Confusional state [Recovered/Resolved]
  - Fatigue [Recovered/Resolved]
  - Dysphagia [Unknown]
  - Weight decreased [Unknown]
  - Depression [Unknown]
